FAERS Safety Report 8034396-9 (Version None)
Quarter: 2012Q1

REPORT INFORMATION
  Report Type: 
  Country: None (occurrence: None)
  Receive Date: 20120110
  Receipt Date: 20111230
  Transmission Date: 20120608
  Serious: Yes (Hospitalization)
  Sender: FDA-Public Use
  Company Number: IT-CTI_01434_2012

PATIENT
  Sex: Male

DRUGS (6)
  1. GIASION (CEFDITOREN) [Suspect]
     Indication: PNEUMONITIS
     Route: 048
     Dates: start: 20111221, end: 20111221
  2. VALSARTAN AND HYDROCHLOROTHIAZIDE [Concomitant]
     Dosage: DF
     Dates: start: 20080101
  3. SINVACOR (SIMVASTATLN) [Concomitant]
     Dosage: FREQUENCY UNKNOWN
     Route: 048
     Dates: start: 20080101
  4. LANTUS /014835011 (INSULIN GLARGINE) [Concomitant]
     Dosage: DF
  5. HUMULIN R [Concomitant]
     Indication: DIABETES MELLITUS
     Dosage: DF
  6. SERETIDE (FLUTICASONE PROPIONATE, SALMETEROL XINAFOATE) [Concomitant]
     Dosage: FREQUENCY UNKNOWN

REACTIONS (4)
  - PRURITUS GENERALISED [None]
  - DYSPNOEA [None]
  - FACE OEDEMA [None]
  - URTICARIA [None]
